FAERS Safety Report 6426092-6 (Version None)
Quarter: 2009Q4

REPORT INFORMATION
  Report Type: 
  Country: None (occurrence: None)
  Receive Date: 20091103
  Receipt Date: 20091103
  Transmission Date: 20100525
  Serious: Yes (Other)
  Sender: FDA-Public Use
  Company Number: None

PATIENT
  Sex: Female
  Weight: 104.3273 kg

DRUGS (2)
  1. SEROQUEL [Suspect]
     Indication: BIPOLAR DISORDER
     Dosage: 200 MG 2 INTRACORNEAL 021 100 MG 1 DAY
     Route: 021
     Dates: start: 20090928
  2. SEROQUEL [Suspect]
     Indication: SCHIZOPHRENIA
     Dosage: 200 MG 2 INTRACORNEAL 021 100 MG 1 DAY
     Route: 021
     Dates: start: 20090928

REACTIONS (2)
  - PHARYNGEAL DISORDER [None]
  - TABLET ISSUE [None]
